FAERS Safety Report 5008578-4 (Version None)
Quarter: 2006Q2

REPORT INFORMATION
  Report Type: 
  Country: None (occurrence: None)
  Receive Date: 20060517
  Receipt Date: 20060503
  Transmission Date: 20061013
  Serious: Yes (Hospitalization)
  Sender: FDA-Public Use
  Company Number: 223425

PATIENT
  Age: 47 Year
  Sex: Male

DRUGS (1)
  1. RAPTIVA [Suspect]
     Indication: PSORIASIS
     Dosage: 100 MG, 1/WEEK, SUBCUTANEOUS
     Route: 058
     Dates: start: 20041201, end: 20051201

REACTIONS (10)
  - ERYSIPELAS [None]
  - ERYSIPELOID [None]
  - ERYTHEMA [None]
  - FEELING ABNORMAL [None]
  - HYPERTHERMIA [None]
  - IMPAIRED WORK ABILITY [None]
  - INFECTION [None]
  - OEDEMA PERIPHERAL [None]
  - PSORIASIS [None]
  - PSORIATIC ARTHROPATHY [None]
